FAERS Safety Report 16324898 (Version 3)
Quarter: 2019Q2

REPORT INFORMATION
  Report Type: Report from Study
  Country: CA (occurrence: CA)
  Receive Date: 20190517
  Receipt Date: 20190620
  Transmission Date: 20190711
  Serious: Yes (Hospitalization, Other)
  Sender: FDA-Public Use
  Company Number: CA-ROCHE-1556366

PATIENT
  Age: 57 Year
  Sex: Male

DRUGS (26)
  1. DIPHENHYDRAMINE HCL [Concomitant]
     Active Substance: DIPHENHYDRAMINE HYDROCHLORIDE
     Route: 048
     Dates: start: 20150324
  2. ACETAMINOPHEN. [Concomitant]
     Active Substance: ACETAMINOPHEN
     Route: 048
     Dates: start: 20150324
  3. METHYLPREDNISOLONE. [Concomitant]
     Active Substance: METHYLPREDNISOLONE
     Route: 042
     Dates: start: 20150324
  4. ACLASTA [Concomitant]
     Active Substance: ZOLEDRONIC ACID
     Route: 065
  5. VALTREX [Concomitant]
     Active Substance: VALACYCLOVIR HYDROCHLORIDE
     Route: 065
  6. CALCIUM [Concomitant]
     Active Substance: CALCIUM
  7. DICLOFENAC [Concomitant]
     Active Substance: DICLOFENAC
     Route: 048
  8. SEPTRA DS [Concomitant]
     Active Substance: SULFAMETHOXAZOLE\TRIMETHOPRIM
     Dosage: 1 DAILY
     Route: 065
  9. FOLIC ACID. [Concomitant]
     Active Substance: FOLIC ACID
     Route: 048
  10. RITUXAN [Suspect]
     Active Substance: RITUXIMAB
     Indication: STEM CELL TRANSPLANT
  11. METHOTREXATE. [Suspect]
     Active Substance: METHOTREXATE
     Indication: PRODUCT USED FOR UNKNOWN INDICATION
     Route: 048
  12. RITUXAN [Suspect]
     Active Substance: RITUXIMAB
     Indication: CHRONIC GRAFT VERSUS HOST DISEASE
     Dosage: ON 14/APR/2015, LAST DOSE (ON HOLD)
     Route: 042
     Dates: start: 20150324
  13. SULFASALAZINE. [Concomitant]
     Active Substance: SULFASALAZINE
     Route: 048
  14. TRAMADOL. [Concomitant]
     Active Substance: TRAMADOL
  15. ZOLEDRONIC ACID [Concomitant]
     Active Substance: ZOLEDRONIC ACID
     Dosage: NEXT DUE SEPTEMBER 16 TH
     Route: 065
  16. FLOVENT [Concomitant]
     Active Substance: FLUTICASONE PROPIONATE
  17. VALACYCLOVIR [Concomitant]
     Active Substance: VALACYCLOVIR HYDROCHLORIDE
  18. AMLODIPINE [Concomitant]
     Active Substance: AMLODIPINE BESYLATE
     Route: 048
  19. ZOPICLONE [Concomitant]
     Active Substance: ZOPICLONE
  20. CYCLOSPORINE. [Concomitant]
     Active Substance: CYCLOSPORINE
     Dosage: 100 MG MORNING AND 50 MG BEDTIME?130 MG IN THE MORNING AND 50 MG IN THE EVENING
     Route: 065
  21. PREDNISONE. [Concomitant]
     Active Substance: PREDNISONE
     Dosage: OFF FOR OVER A MONTH
     Route: 065
  22. PANTOPRAZOLE [Concomitant]
     Active Substance: PANTOPRAZOLE
     Route: 048
  23. VENTOLIN [Concomitant]
     Active Substance: ALBUTEROL SULFATE
     Dosage: REQUIRED
     Route: 048
  24. HYDROXYCHLOROQUINE [Concomitant]
     Active Substance: HYDROXYCHLOROQUINE
     Route: 048
  25. ERYTHROMYCIN. [Concomitant]
     Active Substance: ERYTHROMYCIN
  26. FLUCONAZOLE. [Concomitant]
     Active Substance: FLUCONAZOLE

REACTIONS (24)
  - Dyspnoea exertional [Recovering/Resolving]
  - Injection site extravasation [Recovered/Resolved]
  - Retinal detachment [Unknown]
  - Infusion related reaction [Unknown]
  - Hot flush [Unknown]
  - Oxygen saturation decreased [Unknown]
  - Arthralgia [Unknown]
  - Oedema peripheral [Unknown]
  - Dyspnoea [Not Recovered/Not Resolved]
  - Intentional product use issue [Unknown]
  - Blood pressure systolic abnormal [Unknown]
  - Chorioretinopathy [Unknown]
  - Blood pressure decreased [Unknown]
  - Blood pressure systolic increased [Unknown]
  - Alanine aminotransferase increased [Unknown]
  - Lung infection [Unknown]
  - Conjunctival hyperaemia [Unknown]
  - Blood pressure increased [Unknown]
  - Drug hypersensitivity [Unknown]
  - Blood pressure diastolic abnormal [Unknown]
  - Cataract [Not Recovered/Not Resolved]
  - Fatigue [Unknown]
  - Off label use [Unknown]
  - Weight increased [Unknown]

NARRATIVE: CASE EVENT DATE: 20150324
